FAERS Safety Report 18779028 (Version 2)
Quarter: 2021Q1

REPORT INFORMATION
  Report Type: Spontaneous
  Country: US (occurrence: US)
  Receive Date: 20210124
  Receipt Date: 20210211
  Transmission Date: 20210419
  Serious: Yes (Other)
  Sender: FDA-Public Use
  Company Number: US-ROCHE-2750359

PATIENT
  Age: 46 Year
  Sex: Female
  Weight: 90.8 kg

DRUGS (5)
  1. OCREVUS [Suspect]
     Active Substance: OCRELIZUMAB
     Dosage: FULL NORMAL DOSE ONCE EVERY 6 MONTHS
     Route: 042
  2. ZOLOFT [Concomitant]
     Active Substance: SERTRALINE HYDROCHLORIDE
     Indication: DEPRESSION
  3. LEXAPRO [Concomitant]
     Active Substance: ESCITALOPRAM OXALATE
     Indication: DEPRESSION
  4. COPAXONE [Concomitant]
     Active Substance: GLATIRAMER ACETATE
  5. OCREVUS [Suspect]
     Active Substance: OCRELIZUMAB
     Indication: RELAPSING-REMITTING MULTIPLE SCLEROSIS
     Dosage: 1/2 OF THE NORMAL DOSE TWICE
     Route: 042
     Dates: start: 201805

REACTIONS (7)
  - Inappropriate schedule of product administration [Unknown]
  - Multiple sclerosis relapse [Recovered/Resolved]
  - Anxiety [Recovering/Resolving]
  - Tremor [Recovering/Resolving]
  - Weight decreased [Unknown]
  - SARS-CoV-2 test positive [Recovered/Resolved]
  - Sinus disorder [Recovering/Resolving]

NARRATIVE: CASE EVENT DATE: 201807
